FAERS Safety Report 7836492-5 (Version None)
Quarter: 2011Q4

REPORT INFORMATION
  Report Type: 
  Country: None (occurrence: None)
  Receive Date: 20111024
  Receipt Date: 20110610
  Transmission Date: 20120403
  Serious: No
  Sender: FDA-Public Use
  Company Number: US-ABBOTT-11P-163-0732201-00

PATIENT
  Sex: Female
  Weight: 50.848 kg

DRUGS (2)
  1. LUPRON DEPOT [Suspect]
     Indication: ENDOMETRIOSIS
     Dosage: 4 DOSES TAKEN, SKIPPED JUN 2011 DOSE
     Route: 050
     Dates: start: 20110204
  2. LUPRON DEPOT [Suspect]
     Route: 050
     Dates: start: 20000101, end: 20000101

REACTIONS (5)
  - MIGRAINE [None]
  - HEADACHE [None]
  - FAMILY STRESS [None]
  - DRUG DOSE OMISSION [None]
  - PARAESTHESIA [None]
